FAERS Safety Report 7681590-2 (Version None)
Quarter: 2011Q3

REPORT INFORMATION
  Report Type: 
  Country: None (occurrence: None)
  Receive Date: 20110812
  Receipt Date: 20110801
  Transmission Date: 20111222
  Serious: Yes (Hospitalization)
  Sender: FDA-Public Use
  Company Number: PHHO2011JP13290

PATIENT
  Sex: Male
  Weight: 47 kg

DRUGS (11)
  1. ALISKIREN VS ENALAPRIL VS ALISK.+ENALA. [Suspect]
     Dosage: CODE NOT BROKEN
     Route: 048
     Dates: start: 20100303
  2. LIPITOR [Concomitant]
     Dosage: 10 MG, UNK
     Route: 048
     Dates: start: 20080722
  3. RABEPRAZOLE SODIUM [Concomitant]
     Indication: GASTRITIS PROPHYLAXIS
     Dosage: 10 MG, UNK
     Route: 048
     Dates: start: 20080722
  4. LASIX [Concomitant]
     Indication: CARDIAC FAILURE CHRONIC
     Dosage: 40 MG, UNK
     Route: 048
     Dates: start: 20080722
  5. SLOW-K [Concomitant]
     Indication: HYPOKALAEMIA
     Dosage: 600 MG, UNK
     Route: 048
     Dates: start: 20100916
  6. CARVEDILOL [Concomitant]
     Indication: CARDIAC FAILURE CHRONIC
     Dosage: 10 MG, UNK
     Route: 048
     Dates: start: 20080722
  7. ASPIRIN [Concomitant]
     Indication: PROPHYLAXIS
     Dosage: 200 MG, UNK
     Route: 048
     Dates: start: 20080722
  8. WARFARIN SODIUM [Concomitant]
     Dosage: 3.5 MG, UNK
     Route: 048
     Dates: start: 20110428
  9. SIGMART [Concomitant]
     Indication: PROPHYLAXIS
     Dosage: 15 MG, UNK
     Route: 048
     Dates: start: 20080722
  10. ALOSITOL [Concomitant]
     Dosage: 200 MG, UNK
     Route: 048
     Dates: start: 20080918
  11. ALISKIREN [Suspect]
     Indication: CARDIAC FAILURE

REACTIONS (1)
  - OESOPHAGEAL CARCINOMA [None]
